FAERS Safety Report 5664689-1 (Version None)
Quarter: 2008Q1

REPORT INFORMATION
  Report Type: 
  Country: None (occurrence: None)
  Receive Date: 20080312
  Receipt Date: 20080221
  Transmission Date: 20080703
  Serious: No
  Sender: FDA-Public Use
  Company Number: US022777

PATIENT
  Sex: Male

DRUGS (2)
  1. FENTORA [Suspect]
     Indication: SPINAL COLUMN STENOSIS
     Dosage: 400 UG BUCCAL
     Route: 002
  2. AVINZA [Concomitant]

REACTIONS (4)
  - DRUG INEFFECTIVE [None]
  - INCORRECT DRUG ADMINISTRATION DURATION [None]
  - PHARMACEUTICAL PRODUCT COMPLAINT [None]
  - POOR QUALITY DRUG ADMINISTERED [None]
